FAERS Safety Report 14091838 (Version 1)
Quarter: 2017Q4

REPORT INFORMATION
  Report Type: Spontaneous
  Country: US (occurrence: US)
  Receive Date: 20171013
  Receipt Date: 20171013
  Transmission Date: 20180321
  Serious: Yes (Life-Threatening, Disabling, Other)
  Sender: FDA-Public Use
  Company Number: None

PATIENT
  Weight: 87.75 kg

DRUGS (10)
  1. IVIG [Suspect]
     Active Substance: HUMAN IMMUNOGLOBULIN G
     Indication: PRIMARY IMMUNODEFICIENCY SYNDROME
     Dosage: ?          QUANTITY:500 MG;OTHER FREQUENCY:MONTHLY;?
     Route: 042
     Dates: start: 20170619, end: 20171013
  2. AMBIEN [Concomitant]
     Active Substance: ZOLPIDEM TARTRATE
  3. IVIG [Suspect]
     Active Substance: HUMAN IMMUNOGLOBULIN G
     Indication: BLOOD IMMUNOGLOBULIN M INCREASED
     Dosage: ?          QUANTITY:500 MG;OTHER FREQUENCY:MONTHLY;?
     Route: 042
     Dates: start: 20170619, end: 20171013
  4. ACYCLOVIT [Concomitant]
  5. HEALTH SUPPLEMENTS [Concomitant]
  6. XANAZ [Concomitant]
  7. HTZ [Concomitant]
  8. TAMSULOCIN [Concomitant]
  9. IVIG [Suspect]
     Active Substance: HUMAN IMMUNOGLOBULIN G
     Indication: BLOOD IMMUNOGLOBULIN G DECREASED
     Dosage: ?          QUANTITY:500 MG;OTHER FREQUENCY:MONTHLY;?
     Route: 042
     Dates: start: 20170619, end: 20171013
  10. VITAMINS [Concomitant]
     Active Substance: VITAMINS

REACTIONS (10)
  - Sinusitis [None]
  - Anaphylactic shock [None]
  - Liquid product physical issue [None]
  - Eye disorder [None]
  - Drug dispensing error [None]
  - Legal problem [None]
  - Ear disorder [None]
  - Bronchitis [None]
  - Product preparation error [None]
  - Product tampering [None]

NARRATIVE: CASE EVENT DATE: 20171013
